FAERS Safety Report 17736884 (Version 1)
Quarter: 2020Q2

REPORT INFORMATION
  Report Type: Spontaneous
  Country: FR (occurrence: FR)
  Receive Date: 20200502
  Receipt Date: 20200502
  Transmission Date: 20200714
  Serious: Yes (Other)
  Sender: FDA-Public Use
  Company Number: FR-AUROBINDO-AUR-APL-2020-021427

PATIENT
  Age: 7 Year
  Sex: Male
  Weight: 25 kg

DRUGS (3)
  1. COLCHICINE OPOCALCIUM [Suspect]
     Active Substance: COLCHICINE
     Indication: PERICARDITIS
     Dosage: 1 MILLIGRAM, ONCE A DAY
     Route: 048
     Dates: start: 20200316, end: 20200325
  2. MEROPENEM. [Suspect]
     Active Substance: MEROPENEM
     Indication: LUNG DISORDER
     Dosage: 480 MILLIGRAM, 3 TIMES A DAY
     Route: 042
     Dates: start: 20200320, end: 20200323
  3. CUBICIN [Suspect]
     Active Substance: DAPTOMYCIN
     Indication: LUNG DISORDER
     Dosage: 250 MILLIGRAM, ONCE A DAY
     Route: 042
     Dates: start: 20200313, end: 20200323

REACTIONS (1)
  - Hepatocellular injury [Recovering/Resolving]

NARRATIVE: CASE EVENT DATE: 20200323
